FAERS Safety Report 8457837-1 (Version None)
Quarter: 2012Q2

REPORT INFORMATION
  Report Type: 
  Country: None (occurrence: None)
  Receive Date: 20120323
  Receipt Date: 20111115
  Transmission Date: 20120825
  Serious: Yes (Hospitalization)
  Sender: FDA-Public Use
  Company Number: 163-21880-11081598

PATIENT
  Age: 60 Year
  Sex: Male

DRUGS (7)
  1. INSULIN [Concomitant]
  2. ACYCLOVIR [Concomitant]
  3. SERTRALINE HYDROCHLORIDE [Concomitant]
  4. BORTEZOMIB [Concomitant]
  5. MORPHINE CR (MORPHINE) [Concomitant]
  6. LENALIDOMIDE [Suspect]
     Indication: MULTIPLE MYELOMA
     Dosage: 15 MG. QD. PO
     Route: 048
     Dates: start: 20110621
  7. PREGABALIN [Concomitant]

REACTIONS (1)
  - PLATELET COUNT DECREASED [None]
